FAERS Safety Report 21805003 (Version 1)
Quarter: 2023Q1

REPORT INFORMATION
  Report Type: Report from Study
  Country: US (occurrence: US)
  Receive Date: 20230102
  Receipt Date: 20230102
  Transmission Date: 20230418
  Serious: No
  Sender: FDA-Public Use
  Company Number: US-ABBVIE-4222795

PATIENT
  Sex: Female

DRUGS (4)
  1. HUMIRA [Suspect]
     Active Substance: ADALIMUMAB
     Indication: Colitis ulcerative
     Route: 058
  2. Moderna [Concomitant]
     Indication: COVID-19 immunisation
     Dosage: SECOND DOSE  1 IN ONCE
     Route: 030
     Dates: start: 20210408, end: 20210408
  3. Moderna [Concomitant]
     Indication: COVID-19 immunisation
     Dosage: FIRST DOSE 1 IN ONCE
     Route: 030
     Dates: start: 20210315, end: 20210315
  4. Moderna [Concomitant]
     Indication: COVID-19 immunisation
     Dosage: BOOSTER DOSE  1 IN ONCE
     Route: 030
     Dates: start: 20211212, end: 20211212

REACTIONS (1)
  - Muscle spasms [Recovering/Resolving]
